FAERS Safety Report 25508966 (Version 2)
Quarter: 2025Q3

REPORT INFORMATION
  Report Type: Spontaneous
  Country: EU (occurrence: EU)
  Receive Date: 20250703
  Receipt Date: 20250729
  Transmission Date: 20251021
  Serious: Yes (Disabling, Other)
  Sender: AUROBINDO
  Company Number: EU-TEVA-2018-IT-881982

PATIENT
  Age: 49 Year
  Sex: Female

DRUGS (8)
  1. METHOTREXATE [Suspect]
     Active Substance: METHOTREXATE
     Indication: Prophylaxis
     Route: 065
  2. FLUDARABINE [Suspect]
     Active Substance: FLUDARABINE PHOSPHATE
     Indication: Product used for unknown indication
     Route: 065
  3. CYCLOPHOSPHAMIDE [Suspect]
     Active Substance: CYCLOPHOSPHAMIDE
     Indication: Product used for unknown indication
     Route: 065
  4. THYMOCYTE IMMUNE GLOBULIN NOS [Suspect]
     Active Substance: THYMOCYTE IMMUNE GLOBULIN NOS
     Indication: Graft versus host disease
     Route: 065
  5. THYMOCYTE IMMUNE GLOBULIN NOS [Suspect]
     Active Substance: THYMOCYTE IMMUNE GLOBULIN NOS
     Indication: Prophylaxis against graft versus host disease
  6. CYCLOSPORINE [Suspect]
     Active Substance: CYCLOSPORINE
     Indication: Graft versus host disease
     Route: 065
  7. CYCLOSPORINE [Suspect]
     Active Substance: CYCLOSPORINE
     Indication: Aplastic anaemia
  8. CYCLOSPORINE [Suspect]
     Active Substance: CYCLOSPORINE
     Indication: Prophylaxis against graft versus host disease

REACTIONS (13)
  - Scedosporium infection [Recovered/Resolved]
  - Choroidal detachment [Recovered/Resolved]
  - Meningitis [Recovered/Resolved]
  - Hemiparesis [Recovered/Resolved]
  - Blindness unilateral [Not Recovered/Not Resolved]
  - Arterial disorder [Recovered/Resolved]
  - Aphasia [Recovered/Resolved]
  - Carotid artery occlusion [Recovered/Resolved]
  - Eye pain [Not Recovered/Not Resolved]
  - Migraine [Not Recovered/Not Resolved]
  - Headache [Not Recovered/Not Resolved]
  - Vision blurred [Not Recovered/Not Resolved]
  - Condition aggravated [Unknown]
